FAERS Safety Report 10459531 (Version 1)
Quarter: 2014Q3

REPORT INFORMATION
  Report Type: Spontaneous
  Country: US (occurrence: US)
  Receive Date: 20140917
  Receipt Date: 20140917
  Transmission Date: 20150326
  Serious: Yes (Other)
  Sender: FDA-Public Use
  Company Number: PHEH2014US017884

PATIENT
  Sex: Female

DRUGS (7)
  1. VIVELLE DOT [Suspect]
     Active Substance: ESTRADIOL
     Dosage: 0.325 UNK, UNK
  2. CLONAZEPAM. [Suspect]
     Active Substance: CLONAZEPAM
     Dosage: 0.5 MG, 3 AT BEDTIME
  3. VIVELLE DOT [Suspect]
     Active Substance: ESTRADIOL
     Dosage: 0.626 UKN, UNK
  4. SYNTHROID [Concomitant]
     Active Substance: LEVOTHYROXINE SODIUM
     Dosage: UNK UKN, UNK
  5. ESTROGEN [Concomitant]
     Active Substance: ESTRONE\SUS SCROFA OVARY
     Dosage: UNK UKN, UNK
  6. CLONAZEPAM. [Suspect]
     Active Substance: CLONAZEPAM
     Dosage: LESS THAN 1.5 AT BEDTIME
  7. ATENOLOL. [Concomitant]
     Active Substance: ATENOLOL
     Dosage: UNK UKN, UNK

REACTIONS (17)
  - Eating disorder [Unknown]
  - Nausea [Unknown]
  - Abdominal pain upper [Unknown]
  - Visual impairment [Unknown]
  - Chest pain [Unknown]
  - Fungal infection [Unknown]
  - Feeling abnormal [Unknown]
  - Somnolence [Unknown]
  - Fatigue [Unknown]
  - Alopecia [Unknown]
  - Coordination abnormal [Unknown]
  - Vaginal haemorrhage [Recovered/Resolved]
  - Eructation [Unknown]
  - Abdominal distension [Unknown]
  - Gallbladder disorder [Unknown]
  - Headache [Unknown]
  - Dyspnoea [Unknown]
